FAERS Safety Report 4957739-9 (Version None)
Quarter: 2006Q1

REPORT INFORMATION
  Report Type: 
  Country: None (occurrence: None)
  Receive Date: 20060324
  Receipt Date: 20060309
  Transmission Date: 20060701
  Serious: Yes (Death)
  Sender: FDA-Public Use
  Company Number: US_0511123743

PATIENT
  Age: 82 Year
  Sex: Male

DRUGS (6)
  1. OLANZAPINE [Suspect]
     Indication: VASCULAR DEMENTIA
     Dosage: 2.5 MG, DAILY (1/D), ORAL
     Route: 048
  2. ACETYLSALICYLIC ACID SRT [Concomitant]
  3. VERAPAMIL HCL [Concomitant]
  4. MINITRAN (GLYCERYL TRINITRATE) [Concomitant]
  5. ATENOLOL [Concomitant]
  6. FUROSEMIDE [Concomitant]

REACTIONS (2)
  - MYOCARDIAL INFARCTION [None]
  - OEDEMA PERIPHERAL [None]
